FAERS Safety Report 12518319 (Version 1)
Quarter: 2016Q2

REPORT INFORMATION
  Report Type: Spontaneous
  Country: US (occurrence: US)
  Receive Date: 20160630
  Receipt Date: 20160630
  Transmission Date: 20160815
  Serious: Yes (Hospitalization, Other)
  Sender: FDA-Public Use
  Company Number: US-AMGEN-USASP2016075503

PATIENT
  Age: 66 Year
  Sex: Female
  Weight: 84.81 kg

DRUGS (8)
  1. ZOLOFT [Concomitant]
     Active Substance: SERTRALINE HYDROCHLORIDE
     Dosage: 50 MG, UNK
  2. METOPROLOL. [Concomitant]
     Active Substance: METOPROLOL
     Indication: HYPERTENSION
     Dosage: 25 MG, BID
  3. ZOFRAN [Concomitant]
     Active Substance: ONDANSETRON HYDROCHLORIDE
     Dosage: UNK UNK, AS NECESSARY
  4. CALCIUM [Concomitant]
     Active Substance: CALCIUM
     Indication: HYPOCALCAEMIA
     Dosage: 600 MG, QID
     Route: 042
  5. CLONIDINE. [Concomitant]
     Active Substance: CLONIDINE
     Dosage: 0.3 MG, TID
  6. AMLODIPINE [Concomitant]
     Active Substance: AMLODIPINE BESYLATE
     Dosage: 10 MG, QD
  7. PROLIA [Suspect]
     Active Substance: DENOSUMAB
     Indication: OSTEOPOROSIS
     Dosage: 60 MG, UNK
     Route: 058
     Dates: start: 20160502
  8. ROCALTROL [Concomitant]
     Active Substance: CALCITRIOL
     Dosage: 0.25 MUG, QD

REACTIONS (16)
  - Tremor [Not Recovered/Not Resolved]
  - Oedema [Recovered/Resolved]
  - Metabolic acidosis [Unknown]
  - Pallor [Unknown]
  - Vitamin D decreased [Unknown]
  - Fatigue [Unknown]
  - Hypercalcaemia [Unknown]
  - Hypertension [Unknown]
  - Joint swelling [Unknown]
  - Back pain [Recovering/Resolving]
  - Dizziness [Not Recovered/Not Resolved]
  - Hypocalcaemia [Unknown]
  - Anaemia [Unknown]
  - Dyspnoea [Unknown]
  - Hypomagnesaemia [Unknown]
  - Aortic bruit [Unknown]

NARRATIVE: CASE EVENT DATE: 20160511
